FAERS Safety Report 14270912 (Version 2)
Quarter: 2017Q4

REPORT INFORMATION
  Report Type: Spontaneous
  Country: US (occurrence: US)
  Receive Date: 20171211
  Receipt Date: 20171215
  Transmission Date: 20180321
  Serious: No
  Sender: FDA-Public Use
  Company Number: US-ASTRAZENECA-2017SF24602

PATIENT
  Age: 69 Year
  Sex: Male
  Weight: 119.7 kg

DRUGS (1)
  1. BYDUREON [Suspect]
     Active Substance: EXENATIDE
     Indication: TYPE 2 DIABETES MELLITUS
     Route: 058
     Dates: start: 2017

REACTIONS (3)
  - Device malfunction [Unknown]
  - Wrong technique in product usage process [Unknown]
  - Injection site mass [Unknown]

NARRATIVE: CASE EVENT DATE: 2017
